FAERS Safety Report 6377667-4 (Version None)
Quarter: 2009Q3

REPORT INFORMATION
  Report Type: 
  Country: None (occurrence: None)
  Receive Date: 20090923
  Receipt Date: 20090923
  Transmission Date: 20100115
  Serious: No
  Sender: FDA-Public Use
  Company Number: None

PATIENT
  Age: 53 Year
  Sex: Male

DRUGS (1)
  1. CETIRIZINE HCL [Suspect]
     Dosage: 10 MG ONCE PO
     Route: 048
     Dates: start: 20090916, end: 20090916

REACTIONS (1)
  - ANAPHYLACTIC REACTION [None]
